FAERS Safety Report 9066070 (Version 1)
Quarter: 2013Q1

REPORT INFORMATION
  Report Type: Report from Study
  Country: US (occurrence: US)
  Receive Date: 20130130
  Receipt Date: 20130130
  Transmission Date: 20140127
  Serious: No
  Sender: FDA-Public Use
  Company Number: US-ABBOTT-12P-163-0977547-00

PATIENT
  Age: 56 None
  Sex: Female
  Weight: 102.15 kg

DRUGS (10)
  1. HUMIRA [Suspect]
     Indication: RHEUMATOID ARTHRITIS
     Route: 058
     Dates: start: 2011, end: 201203
  2. HUMIRA [Suspect]
     Route: 058
     Dates: start: 20120903
  3. METHOTREXATE [Concomitant]
     Indication: RHEUMATOID ARTHRITIS
     Dosage: 6 PILLS
  4. DIOVAN [Concomitant]
     Indication: HYPERTENSION
     Dosage: 160/25MG
  5. NORVASC [Concomitant]
     Indication: HYPERTENSION
  6. CLONIDINE [Concomitant]
     Indication: HYPERTENSION
  7. SPIRONOLACTONE [Concomitant]
     Indication: PRODUCT USED FOR UNKNOWN INDICATION
  8. COREG [Concomitant]
     Indication: HYPERTENSION
  9. FOLIC ACID [Concomitant]
     Indication: MEDICAL DIET
  10. SYNTHROID [Concomitant]
     Indication: GOITRE

REACTIONS (5)
  - Inflammatory marker increased [Not Recovered/Not Resolved]
  - Muscle spasms [Not Recovered/Not Resolved]
  - Arthralgia [Not Recovered/Not Resolved]
  - Pain [Not Recovered/Not Resolved]
  - Drug ineffective [Not Recovered/Not Resolved]
